FAERS Safety Report 8020346-8 (Version None)
Quarter: 2012Q1

REPORT INFORMATION
  Report Type: 
  Country: None (occurrence: None)
  Receive Date: 20120103
  Receipt Date: 20111229
  Transmission Date: 20120608
  Serious: Yes (Death)
  Sender: FDA-Public Use
  Company Number: CA-ROCHE-1026391

PATIENT
  Sex: Female

DRUGS (5)
  1. ADVAIR DISKUS 100/50 [Concomitant]
  2. XOLAIR [Suspect]
     Indication: ASTHMA
     Route: 058
     Dates: start: 20110203
  3. VENTOLIN [Concomitant]
  4. PREDNISONE TAB [Concomitant]
  5. SINGULAIR [Concomitant]

REACTIONS (7)
  - DEATH [None]
  - COUGH [None]
  - EYE IRRITATION [None]
  - EYE DISCHARGE [None]
  - DIARRHOEA [None]
  - HEADACHE [None]
  - INJECTION SITE ERYTHEMA [None]
